FAERS Safety Report 8308953-6 (Version None)
Quarter: 2012Q2

REPORT INFORMATION
  Report Type: 
  Country: None (occurrence: None)
  Receive Date: 20120424
  Receipt Date: 20120414
  Transmission Date: 20120825
  Serious: Yes (Other)
  Sender: FDA-Public Use
  Company Number: US-BAYER-2012-039378

PATIENT
  Age: 81 Year
  Sex: Female
  Weight: 83 kg

DRUGS (8)
  1. FLAGYL [Concomitant]
     Indication: INFECTION
     Dates: start: 20120407
  2. XARELTO [Interacting]
     Indication: PRODUCT USED FOR UNKNOWN INDICATION
     Dosage: 20 MG, QD
     Route: 048
     Dates: start: 20120412
  3. DIOVAN [Concomitant]
     Indication: HYPERTENSION
  4. LOPRESSOR [Concomitant]
     Indication: HYPERTENSION
  5. SYNTHROID [Concomitant]
     Indication: HYPOTHYROIDISM
  6. ASPIRIN [Suspect]
  7. ZOCOR [Concomitant]
     Indication: BLOOD CHOLESTEROL INCREASED
  8. CIPROFLOXACIN HCL [Concomitant]
     Indication: INFECTION
     Dates: start: 20120407

REACTIONS (2)
  - INTERNATIONAL NORMALISED RATIO INCREASED [None]
  - HAEMORRHAGE [None]
